FAERS Safety Report 6764850-9 (Version None)
Quarter: 2010Q2

REPORT INFORMATION
  Report Type: 
  Country: None (occurrence: None)
  Receive Date: 20100610
  Receipt Date: 20100531
  Transmission Date: 20101027
  Serious: Yes (Death)
  Sender: FDA-Public Use
  Company Number: DE-ABBOTT-10P-062-0627357-00

PATIENT
  Sex: Male
  Weight: 64.5 kg

DRUGS (8)
  1. ZEMPLAR [Suspect]
     Indication: HYPERPARATHYROIDISM SECONDARY
     Route: 042
     Dates: start: 20090318
  2. CA ACETATE [Concomitant]
     Indication: BLOOD PHOSPHORUS INCREASED
  3. PHOSPHONORM [Concomitant]
     Indication: RENAL FAILURE
  4. ARANESP [Concomitant]
     Indication: ANAEMIA
     Route: 042
  5. EXFORGE [Concomitant]
     Indication: HYPERTENSION
     Dosage: 5/160 MG
  6. LEVOTHYROXINE SODIUM [Concomitant]
     Indication: HYPOTHYROIDISM
  7. SIMVAHEXAL [Concomitant]
     Indication: HYPERCHOLESTEROLAEMIA
  8. PHENPROCOUMON [Concomitant]
     Indication: ANTICOAGULANT THERAPY

REACTIONS (2)
  - CORONARY ARTERY OCCLUSION [None]
  - MYOCARDIAL INFARCTION [None]
